FAERS Safety Report 19029459 (Version 1)
Quarter: 2021Q1

REPORT INFORMATION
  Report Type: Spontaneous
  Country: RU (occurrence: RU)
  Receive Date: 20210318
  Receipt Date: 20210318
  Transmission Date: 20210420
  Serious: Yes (Life-Threatening, Hospitalization)
  Sender: FDA-Public Use
  Company Number: RU-NOVOPROD-794163

PATIENT
  Age: 42 Year
  Sex: Male
  Weight: 63 kg

DRUGS (11)
  1. BISOPROLOL [Concomitant]
     Active Substance: BISOPROLOL
     Dosage: UNK
     Route: 065
  2. NOVORAPID [Suspect]
     Active Substance: INSULIN ASPART
     Indication: TYPE 1 DIABETES MELLITUS
     Dosage: 140 IU
     Route: 058
     Dates: start: 20200516, end: 20200522
  3. ALFACALCIDOL [Concomitant]
     Active Substance: ALFACALCIDOL
     Dosage: 0.25 ?G
     Route: 048
  4. NOVORAPID [Suspect]
     Active Substance: INSULIN ASPART
     Indication: END STAGE RENAL DISEASE
  5. ENOXAPARINUM NATRICUM [Concomitant]
     Indication: TYPE 1 DIABETES MELLITUS
     Dosage: UNK
     Route: 042
  6. NOVORAPID [Suspect]
     Active Substance: INSULIN ASPART
     Indication: RENAL REPLACEMENT THERAPY
  7. NOVORAPID [Suspect]
     Active Substance: INSULIN ASPART
     Indication: HAEMODIALYSIS
  8. DOXAZOSIN [Concomitant]
     Active Substance: DOXAZOSIN MESYLATE
     Dosage: 4 MG
     Route: 048
  9. NOVORAPID [Suspect]
     Active Substance: INSULIN ASPART
     Indication: DIABETIC RETINOPATHY
  10. PANCREATIN [Concomitant]
     Active Substance: PANCRELIPASE
     Dosage: 25 IU
     Route: 048
  11. NOVORAPID [Suspect]
     Active Substance: INSULIN ASPART
     Indication: DIABETIC NEPHROPATHY

REACTIONS (3)
  - Urticaria [Recovered/Resolved]
  - Angioedema [Recovered/Resolved]
  - Pruritus [Recovered/Resolved]

NARRATIVE: CASE EVENT DATE: 20200518
